FAERS Safety Report 22254088 (Version 1)
Quarter: 2023Q2

REPORT INFORMATION
  Report Type: Report from Study
  Country: IT (occurrence: IT)
  Receive Date: 20230426
  Receipt Date: 20230426
  Transmission Date: 20230721
  Serious: Yes (Hospitalization)
  Sender: FDA-Public Use
  Company Number: None

PATIENT
  Age: 68 Year
  Sex: Male

DRUGS (6)
  1. CARBOPLATIN [Suspect]
     Active Substance: CARBOPLATIN
     Indication: Bladder adenocarcinoma stage IV
     Dosage: 150 MG MILLIGRAM
     Dates: start: 20220804
  2. GLICLAZIDE [Concomitant]
     Active Substance: GLICLAZIDE
  3. CARVEDILOL [Concomitant]
     Active Substance: CARVEDILOL
  4. FEBUXOSTAT [Concomitant]
     Active Substance: FEBUXOSTAT
  5. FERROUS SULFATE [Concomitant]
     Active Substance: FERROUS SULFATE
  6. ENALAPRIL MALEATE\LERCANIDIPINE HYDROCHLORIDE [Concomitant]
     Active Substance: ENALAPRIL MALEATE\LERCANIDIPINE HYDROCHLORIDE

REACTIONS (1)
  - Pancytopenia [Recovering/Resolving]

NARRATIVE: CASE EVENT DATE: 20220819
